FAERS Safety Report 24828897 (Version 1)
Quarter: 2025Q1

REPORT INFORMATION
  Report Type: Spontaneous
  Country: CN (occurrence: CN)
  Receive Date: 20250110
  Receipt Date: 20250110
  Transmission Date: 20250409
  Serious: Yes (Hospitalization, Other)
  Sender: AUROBINDO
  Company Number: CN-AUROBINDO-AUR-APL-2025-000269

PATIENT
  Age: 20 Year
  Sex: Female

DRUGS (6)
  1. MIRTAZAPINE [Suspect]
     Active Substance: MIRTAZAPINE
     Indication: Depression
     Dosage: 15 MILLIGRAM, ONCE A DAY
     Route: 048
     Dates: start: 20241129
  2. MIRTAZAPINE [Suspect]
     Active Substance: MIRTAZAPINE
     Indication: Symptomatic treatment
  3. PERPHENAZINE [Suspect]
     Active Substance: PERPHENAZINE
     Indication: Depression
     Dosage: 100 MILLIGRAM, TWO TIMES A DAY
     Route: 048
     Dates: start: 20241129
  4. PERPHENAZINE [Suspect]
     Active Substance: PERPHENAZINE
     Indication: Symptomatic treatment
  5. HERBALS\DIAMMONIUM GLYCYRRHIZINATE [Suspect]
     Active Substance: HERBALS\DIAMMONIUM GLYCYRRHIZINATE
     Indication: Depression
     Dosage: 150 MILLIGRAM, 3 TIMES A DAY
     Route: 048
  6. HERBALS\DIAMMONIUM GLYCYRRHIZINATE [Suspect]
     Active Substance: HERBALS\DIAMMONIUM GLYCYRRHIZINATE
     Indication: Symptomatic treatment

REACTIONS (1)
  - Hepatic failure [Unknown]

NARRATIVE: CASE EVENT DATE: 20241216
